FAERS Safety Report 14474360 (Version 1)
Quarter: 2018Q1

REPORT INFORMATION
  Report Type: Spontaneous
  Country: US (occurrence: US)
  Receive Date: 20180201
  Receipt Date: 20180201
  Transmission Date: 20180509
  Serious: No
  Sender: FDA-Public Use
  Company Number: US-ENDO PHARMACEUTICALS INC-2017-004257

PATIENT
  Sex: Female

DRUGS (2)
  1. BUPROPION HYDROCHLORIDE XL [Suspect]
     Active Substance: BUPROPION HYDROCHLORIDE
     Indication: ANXIETY
     Dosage: 1 DF, OD
     Route: 065
     Dates: start: 201706, end: 20170702
  2. LUNESTA [Concomitant]
     Active Substance: ESZOPICLONE
     Indication: INSOMNIA

REACTIONS (7)
  - Nervousness [Unknown]
  - Disorientation [Not Recovered/Not Resolved]
  - Dizziness [Not Recovered/Not Resolved]
  - Feeling abnormal [Unknown]
  - Tremor [Unknown]
  - Wrong technique in product usage process [Unknown]
  - Hypoaesthesia [Unknown]
